FAERS Safety Report 8835116 (Version 2)
Quarter: 2012Q4

REPORT INFORMATION
  Report Type: 
  Country: BR (occurrence: BR)
  Receive Date: 20121011
  Receipt Date: 20121217
  Transmission Date: 20130627
  Serious: Yes (Hospitalization, Disabling)
  Sender: FDA-Public Use
  Company Number: BR-ASTRAZENECA-2012SE72289

PATIENT
  Age: 654 Month
  Sex: Female

DRUGS (2)
  1. ATACAND HCT [Suspect]
     Indication: HYPERTENSION
     Dosage: 16/12.5 MG, UNKNOWN FREQUENCY
     Route: 048
     Dates: start: 2009
  2. ATACAND [Suspect]
     Route: 048

REACTIONS (6)
  - Respiratory fatigue [Recovered/Resolved]
  - Amyotrophic lateral sclerosis [Not Recovered/Not Resolved]
  - Quadriplegia [Recovered/Resolved with Sequelae]
  - Aphasia [Recovered/Resolved with Sequelae]
  - Blood pressure inadequately controlled [Recovered/Resolved]
  - Drug ineffective [Unknown]
